FAERS Safety Report 16839370 (Version 1)
Quarter: 2019Q3

REPORT INFORMATION
  Report Type: Spontaneous
  Country: FI (occurrence: FI)
  Receive Date: 20190923
  Receipt Date: 20190923
  Transmission Date: 20191005
  Serious: Yes (Hospitalization)
  Sender: FDA-Public Use
  Company Number: FI-JNJFOC-20190921655

PATIENT
  Age: 92 Year
  Sex: Female

DRUGS (5)
  1. FURESIS [Concomitant]
     Active Substance: FUROSEMIDE
     Dosage: 20 MG, QD
     Route: 048
  2. METOPROLOL SUCCINATE. [Concomitant]
     Active Substance: METOPROLOL SUCCINATE
     Dosage: 190 MG, QD
     Route: 048
  3. ORMOX [Concomitant]
     Dosage: 40 MG, QD
     Route: 048
  4. RIVAROXABAN [Suspect]
     Active Substance: RIVAROXABAN
     Indication: ATRIAL FIBRILLATION
     Dosage: 20 MG, QD
     Route: 048
     Dates: start: 20190713, end: 20190819
  5. PARA-TABS [Concomitant]
     Active Substance: ACETAMINOPHEN
     Dosage: UNK
     Route: 048

REACTIONS (6)
  - Fall [Recovered/Resolved]
  - Fear [Recovered/Resolved]
  - Hallucination [Recovered/Resolved]
  - Wound haemorrhage [Recovered/Resolved]
  - Insomnia [Recovered/Resolved]
  - Vitamin B12 deficiency [Recovered/Resolved]

NARRATIVE: CASE EVENT DATE: 20190722
